FAERS Safety Report 19835153 (Version 3)
Quarter: 2021Q4

REPORT INFORMATION
  Report Type: Report from Study
  Country: US (occurrence: None)
  Receive Date: 20210914
  Receipt Date: 20211130
  Transmission Date: 20220303
  Serious: Yes (Hospitalization)
  Sender: FDA-Public Use
  Company Number: US-MERCK HEALTHCARE KGAA-9264532

PATIENT
  Age: 67 Year
  Sex: Male

DRUGS (5)
  1. MAVENCLAD [Suspect]
     Active Substance: CLADRIBINE
     Indication: Multiple sclerosis
     Dosage: YEAR ONE THERAPY
     Route: 048
     Dates: start: 20200128
  2. MAVENCLAD [Suspect]
     Active Substance: CLADRIBINE
     Dosage: YEAR TWO MONTH ONE THERAPY
     Route: 048
     Dates: end: 202105
  3. KEFLEX [Suspect]
     Active Substance: CEPHALEXIN
     Indication: Skin infection
     Dates: start: 2021
  4. KEFLEX [Suspect]
     Active Substance: CEPHALEXIN
     Indication: Petechiae
  5. ZETIA [Concomitant]
     Active Substance: EZETIMIBE
     Indication: Product used for unknown indication
     Dates: start: 2021

REACTIONS (8)
  - Drug hypersensitivity [Recovered/Resolved]
  - Skin infection [Recovering/Resolving]
  - Petechiae [Recovering/Resolving]
  - Peripheral swelling [Recovered/Resolved]
  - Swelling [Recovered/Resolved]
  - Skin discolouration [Recovered/Resolved]
  - Urticaria [Recovered/Resolved]
  - Skin exfoliation [Unknown]

NARRATIVE: CASE EVENT DATE: 20210101
